FAERS Safety Report 7268723-7 (Version None)
Quarter: 2011Q1

REPORT INFORMATION
  Report Type: 
  Country: None (occurrence: None)
  Receive Date: 20110201
  Receipt Date: 20110121
  Transmission Date: 20110831
  Serious: Yes (Other)
  Sender: FDA-Public Use
  Company Number: US-ELI_LILLY_AND_COMPANY-US201101006388

PATIENT
  Sex: Male

DRUGS (2)
  1. HUMULIN 70/30 [Suspect]
     Indication: DIABETES MELLITUS
     Dosage: UNK, AS NEEDED
  2. HUMULIN 70/30 [Suspect]
     Dosage: UNK, AS NEEDED

REACTIONS (8)
  - VISION BLURRED [None]
  - LIVER DISORDER [None]
  - CARDIOMYOPATHY [None]
  - SPLENOMEGALY [None]
  - VISUAL ACUITY REDUCED [None]
  - CARDIAC DISORDER [None]
  - HYPOAESTHESIA [None]
  - UNDERDOSE [None]
